FAERS Safety Report 21274498 (Version 1)
Quarter: 2022Q3

REPORT INFORMATION
  Report Type: Report from Study
  Country: DE (occurrence: DE)
  Receive Date: 20220831
  Receipt Date: 20220831
  Transmission Date: 20221026
  Serious: Yes (Hospitalization, Other)
  Sender: FDA-Public Use
  Company Number: DE-NOVARTISPH-PHHY2018DE077921

PATIENT
  Sex: Male

DRUGS (17)
  1. METHOTREXATE [Suspect]
     Active Substance: METHOTREXATE
     Indication: Rheumatoid arthritis
     Dosage: 10 MG (T0)
     Route: 065
     Dates: start: 20110511
  2. METHOTREXATE [Suspect]
     Active Substance: METHOTREXATE
     Dosage: 10 MG (T1)
     Route: 065
     Dates: start: 20110928
  3. METHOTREXATE [Suspect]
     Active Substance: METHOTREXATE
     Dosage: 10 MG (T2)
     Route: 065
     Dates: start: 20120102
  4. METHOTREXATE [Suspect]
     Active Substance: METHOTREXATE
     Dosage: 10 MG (T3)
     Route: 065
     Dates: start: 20120117
  5. METHOTREXATE [Suspect]
     Active Substance: METHOTREXATE
     Dosage: 10 MG (T4)
     Route: 065
     Dates: start: 20120604
  6. METHOTREXATE [Suspect]
     Active Substance: METHOTREXATE
     Dosage: 10 MG (T6)
     Route: 065
     Dates: start: 20130130
  7. METHOTREXATE [Suspect]
     Active Substance: METHOTREXATE
     Dosage: 10 MG (T7)
     Route: 065
     Dates: start: 20140624
  8. METHOTREXATE [Suspect]
     Active Substance: METHOTREXATE
     Dosage: 10 MG (T8)
     Route: 065
     Dates: start: 20150106
  9. METHOTREXATE [Suspect]
     Active Substance: METHOTREXATE
     Dosage: 10 MG (T9)
     Route: 065
     Dates: start: 20150512
  10. METHOTREXATE [Suspect]
     Active Substance: METHOTREXATE
     Dosage: 10 MG (T11)
     Route: 065
     Dates: start: 20160531
  11. METHOTREXATE [Suspect]
     Active Substance: METHOTREXATE
     Dosage: 10 MG (T12)
     Route: 065
     Dates: start: 20170118
  12. METHOTREXATE [Suspect]
     Active Substance: METHOTREXATE
     Dosage: 10 MG (T13)
     Route: 065
     Dates: start: 20170705
  13. METHOTREXATE [Suspect]
     Active Substance: METHOTREXATE
     Dosage: 10 MG (T14)
     Route: 065
     Dates: start: 20180115
  14. METHOTREXATE [Suspect]
     Active Substance: METHOTREXATE
     Dosage: 10 MG (T16)
     Route: 065
     Dates: start: 20180917
  15. METHOTREXATE [Suspect]
     Active Substance: METHOTREXATE
     Dosage: 10 MG (T17)
     Route: 065
     Dates: start: 20190115
  16. METHOTREXATE [Suspect]
     Active Substance: METHOTREXATE
     Dosage: 10 MG (T18)
     Route: 065
     Dates: start: 20190418
  17. UNSPECIFIED INGREDIENT [Suspect]
     Active Substance: UNSPECIFIED INGREDIENT
     Indication: Product used for unknown indication
     Dosage: UNK
     Route: 065

REACTIONS (8)
  - Benign prostatic hyperplasia [Recovered/Resolved]
  - Urethral obstruction [Recovered/Resolved]
  - Epididymitis [Recovered/Resolved]
  - Cellulitis [Not Recovered/Not Resolved]
  - Influenza like illness [Unknown]
  - Rheumatoid nodule [Unknown]
  - Rheumatoid nodule [Recovered/Resolved]
  - Bronchitis [Recovered/Resolved]

NARRATIVE: CASE EVENT DATE: 20170215
